FAERS Safety Report 13543913 (Version 5)
Quarter: 2021Q3

REPORT INFORMATION
  Report Type: Spontaneous
  Country: US (occurrence: US)
  Receive Date: 20170515
  Receipt Date: 20210811
  Transmission Date: 20211014
  Serious: Yes (Other)
  Sender: FDA-Public Use
  Company Number: US-ASTRAZENECA-2017SE48956

PATIENT
  Age: 69 Year
  Sex: Female
  Weight: 101.2 kg

DRUGS (113)
  1. NEXIUM [Suspect]
     Active Substance: ESOMEPRAZOLE MAGNESIUM
     Indication: GASTRIC PH DECREASED
     Dosage: 40.0MG UNKNOWN
     Route: 048
     Dates: start: 20060607
  2. NEXIUM [Suspect]
     Active Substance: ESOMEPRAZOLE MAGNESIUM
     Indication: GASTROOESOPHAGEAL REFLUX DISEASE
     Dosage: UNKNOWN
     Route: 048
     Dates: start: 20070223
  3. PRILOSEC [Suspect]
     Active Substance: OMEPRAZOLE MAGNESIUM
     Indication: GASTRIC PH DECREASED
     Route: 048
     Dates: start: 2006, end: 2012
  4. PRILOSEC [Suspect]
     Active Substance: OMEPRAZOLE MAGNESIUM
     Indication: GASTROOESOPHAGEAL REFLUX DISEASE
     Dosage: GENERIC20.0MG UNKNOWN
     Route: 048
     Dates: start: 20060626
  5. PRILOSEC [Suspect]
     Active Substance: OMEPRAZOLE MAGNESIUM
     Indication: GASTRIC PH DECREASED
     Dosage: GENERIC20.0MG UNKNOWN
     Route: 048
     Dates: start: 20060626
  6. PRILOSEC OTC [Suspect]
     Active Substance: OMEPRAZOLE MAGNESIUM
     Indication: GASTRIC PH DECREASED
     Route: 048
     Dates: start: 2006, end: 2012
  7. POTASSIUM CL [Concomitant]
     Active Substance: POTASSIUM CHLORIDE
     Dosage: 10.0MEQ UNKNOWN
     Route: 065
     Dates: start: 20060712
  8. VESICARE [Concomitant]
     Active Substance: SOLIFENACIN SUCCINATE
     Dosage: 5.0MG UNKNOWN
     Route: 065
     Dates: start: 20061118
  9. LOVASTATIN. [Concomitant]
     Active Substance: LOVASTATIN
  10. BONIVA [Concomitant]
     Active Substance: IBANDRONATE SODIUM
  11. LYRICA [Concomitant]
     Active Substance: PREGABALIN
  12. VALACYCLOVIR [Concomitant]
     Active Substance: VALACYCLOVIR HYDROCHLORIDE
  13. TAGAMET HB [Concomitant]
     Active Substance: CIMETIDINE
  14. CHOLECALCIFEROL [Concomitant]
     Active Substance: CHOLECALCIFEROL
  15. MEPERIDINE [Concomitant]
     Active Substance: MEPERIDINE
  16. FERROUS SULFATE. [Concomitant]
     Active Substance: FERROUS SULFATE
  17. PRILOSEC [Suspect]
     Active Substance: OMEPRAZOLE MAGNESIUM
     Indication: GASTROOESOPHAGEAL REFLUX DISEASE
     Route: 048
     Dates: start: 2006, end: 2012
  18. PRILOSEC [Suspect]
     Active Substance: OMEPRAZOLE MAGNESIUM
     Indication: GASTRIC PH DECREASED
     Dosage: 20.0MG UNKNOWN
     Route: 048
     Dates: start: 20140724
  19. PRILOSEC [Suspect]
     Active Substance: OMEPRAZOLE MAGNESIUM
     Indication: GASTRIC PH DECREASED
     Dosage: GENERIC20.0MG UNKNOWN
     Route: 065
     Dates: start: 20060626
  20. PRILOSEC [Suspect]
     Active Substance: OMEPRAZOLE MAGNESIUM
     Indication: GASTRIC PH DECREASED
     Dosage: GENERIC UNKNOWN
     Route: 065
     Dates: start: 200801
  21. PRILOSEC OTC [Suspect]
     Active Substance: OMEPRAZOLE MAGNESIUM
     Indication: GASTRIC PH DECREASED
     Route: 048
     Dates: start: 201009, end: 201403
  22. DEXLANSOPRAZOLE [Concomitant]
     Active Substance: DEXLANSOPRAZOLE
  23. LISINOPRIL. [Concomitant]
     Active Substance: LISINOPRIL
     Dosage: 10.0MG UNKNOWN
     Route: 065
     Dates: start: 20060626
  24. FUROSEMIDE. [Concomitant]
     Active Substance: FUROSEMIDE
     Dosage: 40.0MG UNKNOWN
     Route: 065
     Dates: start: 20120730
  25. LORATADINE. [Concomitant]
     Active Substance: LORATADINE
  26. TRIAMCINOLONE [Concomitant]
     Active Substance: TRIAMCINOLONE
  27. ATENOLOL. [Concomitant]
     Active Substance: ATENOLOL
  28. VITAMIN D [Concomitant]
     Active Substance: VITAMIN D NOS
  29. CALCIUM CARBONATE. [Concomitant]
     Active Substance: CALCIUM CARBONATE
  30. MOVANTIK [Concomitant]
     Active Substance: NALOXEGOL OXALATE
  31. NEXIUM [Suspect]
     Active Substance: ESOMEPRAZOLE MAGNESIUM
     Indication: GASTROOESOPHAGEAL REFLUX DISEASE
     Dosage: 40.0MG UNKNOWN
     Route: 048
     Dates: start: 20060607
  32. NEXIUM [Suspect]
     Active Substance: ESOMEPRAZOLE MAGNESIUM
     Indication: GASTROOESOPHAGEAL REFLUX DISEASE
     Dosage: UNKNOWN
     Route: 048
     Dates: start: 20060804
  33. NEXIUM [Suspect]
     Active Substance: ESOMEPRAZOLE MAGNESIUM
     Indication: GASTRIC PH DECREASED
     Dosage: UNKNOWN
     Route: 048
     Dates: start: 20071123
  34. PRILOSEC [Suspect]
     Active Substance: OMEPRAZOLE MAGNESIUM
     Indication: GASTRIC PH DECREASED
     Dosage: GENERIC
     Route: 065
     Dates: start: 2006, end: 2012
  35. PRILOSEC [Suspect]
     Active Substance: OMEPRAZOLE MAGNESIUM
     Indication: GASTROOESOPHAGEAL REFLUX DISEASE
     Dosage: GENERIC20.0MG UNKNOWN
     Route: 065
     Dates: start: 20060626
  36. PRILOSEC [Suspect]
     Active Substance: OMEPRAZOLE MAGNESIUM
     Indication: GASTROOESOPHAGEAL REFLUX DISEASE
     Dosage: GENERIC UNKNOWN
     Route: 048
     Dates: start: 20070105
  37. VENLAFAXINE [Concomitant]
     Active Substance: VENLAFAXINE HYDROCHLORIDE
  38. ISOSORBIDE MONONITRATE. [Concomitant]
     Active Substance: ISOSORBIDE MONONITRATE
  39. ADVADIA [Concomitant]
  40. SODIUM CHLORIDE. [Concomitant]
     Active Substance: SODIUM CHLORIDE
     Dosage: 0.9%0.9% SYRG 5 ML SYRINGE
  41. TIZANIDINE. [Concomitant]
     Active Substance: TIZANIDINE
  42. SULFAGUANIDINE/DICYCLOVERINE HYDROCHLORIDE/CHARCOAL, ACTIVATED/PECTIN/BISMUTH SUBCARBONATE [Concomitant]
  43. NEXIUM [Suspect]
     Active Substance: ESOMEPRAZOLE MAGNESIUM
     Indication: GASTRIC PH DECREASED
     Dosage: 40.0MG UNKNOWN
     Route: 048
     Dates: start: 200607, end: 201209
  44. NEXIUM [Suspect]
     Active Substance: ESOMEPRAZOLE MAGNESIUM
     Indication: GASTRIC PH DECREASED
     Dosage: UNKNOWN
     Route: 048
     Dates: start: 20070223
  45. NEXIUM [Suspect]
     Active Substance: ESOMEPRAZOLE MAGNESIUM
     Indication: GASTRIC PH DECREASED
     Dosage: UNKNOWN
     Route: 048
     Dates: start: 20060804
  46. ACTONEL [Concomitant]
     Active Substance: RISEDRONATE SODIUM
     Dosage: 35.0MG UNKNOWN
     Route: 065
     Dates: start: 20070716
  47. AVANDIA [Concomitant]
     Active Substance: ROSIGLITAZONE MALEATE
     Dosage: 4.0MG UNKNOWN
     Route: 065
     Dates: start: 20070921
  48. NITROFURANTOIN. [Concomitant]
     Active Substance: NITROFURANTOIN
  49. SULFAMETHOXAZOLE [Concomitant]
     Active Substance: SULFAMETHOXAZOLE
  50. MIRTAZAPINE. [Concomitant]
     Active Substance: MIRTAZAPINE
  51. AMOXCLAV [Concomitant]
     Active Substance: AMOXICILLIN\CLAVULANIC ACID
  52. PREDNISONE. [Concomitant]
     Active Substance: PREDNISONE
  53. MULTIVITAMINS [Concomitant]
     Active Substance: VITAMINS
  54. NUCYNTA [Concomitant]
     Active Substance: TAPENTADOL HYDROCHLORIDE
  55. CEFADROXIL. [Concomitant]
     Active Substance: CEFADROXIL
  56. ELIQUIS [Concomitant]
     Active Substance: APIXABAN
  57. AMBIEN [Concomitant]
     Active Substance: ZOLPIDEM TARTRATE
  58. NEXIUM [Suspect]
     Active Substance: ESOMEPRAZOLE MAGNESIUM
     Indication: GASTRIC PH DECREASED
     Route: 048
     Dates: start: 2006, end: 2012
  59. NEXIUM [Suspect]
     Active Substance: ESOMEPRAZOLE MAGNESIUM
     Indication: GASTRIC PH DECREASED
     Dosage: UNKNOWN
     Route: 048
     Dates: start: 20120707
  60. PRILOSEC [Suspect]
     Active Substance: OMEPRAZOLE MAGNESIUM
     Indication: GASTROOESOPHAGEAL REFLUX DISEASE
     Dosage: GENERIC
     Route: 065
     Dates: start: 2006, end: 2012
  61. PRILOSEC [Suspect]
     Active Substance: OMEPRAZOLE MAGNESIUM
     Indication: GASTRIC PH DECREASED
     Dosage: GENERIC UNKNOWN
     Route: 048
     Dates: start: 20070105
  62. PRILOSEC OTC [Suspect]
     Active Substance: OMEPRAZOLE MAGNESIUM
     Indication: GASTRIC PH DECREASED
     Route: 048
     Dates: start: 201501, end: 201612
  63. PANTOPRAZOLE [Concomitant]
     Active Substance: PANTOPRAZOLE
  64. FOSAMAX [Concomitant]
     Active Substance: ALENDRONATE SODIUM
     Dosage: 70.0MG UNKNOWN
     Route: 065
     Dates: start: 20061228
  65. PLAVIX [Concomitant]
     Active Substance: CLOPIDOGREL BISULFATE
  66. XIBROM [Concomitant]
     Active Substance: BROMFENAC SODIUM
  67. OXYCODONE [Concomitant]
     Active Substance: OXYCODONE
  68. PROLIA [Concomitant]
     Active Substance: DENOSUMAB
  69. VOLTAREN [Concomitant]
     Active Substance: DICLOFENAC SODIUM
  70. CYMBALTA [Concomitant]
     Active Substance: DULOXETINE HYDROCHLORIDE
  71. CARISOPRODOL. [Concomitant]
     Active Substance: CARISOPRODOL
  72. CELEXA [Concomitant]
     Active Substance: CITALOPRAM HYDROBROMIDE
  73. ACETAMINOPHEN. [Concomitant]
     Active Substance: ACETAMINOPHEN
  74. MELATONIN [Concomitant]
     Active Substance: MELATONIN
  75. PRILOSEC [Suspect]
     Active Substance: OMEPRAZOLE MAGNESIUM
     Indication: GASTROOESOPHAGEAL REFLUX DISEASE
     Dosage: 20.0MG UNKNOWN
     Route: 048
     Dates: start: 20140724
  76. PRILOSEC [Suspect]
     Active Substance: OMEPRAZOLE MAGNESIUM
     Indication: GASTROOESOPHAGEAL REFLUX DISEASE
     Dosage: GENERIC UNKNOWN
     Route: 065
     Dates: start: 200801
  77. PRILOSEC OTC [Suspect]
     Active Substance: OMEPRAZOLE MAGNESIUM
     Indication: GASTRIC PH DECREASED
     Route: 048
     Dates: start: 2015, end: 2016
  78. NITROQUICK [Concomitant]
     Active Substance: NITROGLYCERIN
     Dosage: 0.4MG UNKNOWN
     Route: 065
     Dates: start: 20070313
  79. HYDROCODONE/PARACETAMOL [Concomitant]
     Active Substance: ACETAMINOPHEN\HYDROCODONE BITARTRATE
  80. POLYETHYLENE GLYCOL [Concomitant]
     Active Substance: POLYETHYLENE GLYCOLS
  81. MUCINEX [Concomitant]
     Active Substance: GUAIFENESIN
  82. BUSPIRONE [Concomitant]
     Active Substance: BUSPIRONE HYDROCHLORIDE
  83. ZOFRAN [Concomitant]
     Active Substance: ONDANSETRON HYDROCHLORIDE
  84. NEXIUM [Suspect]
     Active Substance: ESOMEPRAZOLE MAGNESIUM
     Indication: GASTROOESOPHAGEAL REFLUX DISEASE
     Route: 048
     Dates: start: 2006, end: 2012
  85. NEXIUM [Suspect]
     Active Substance: ESOMEPRAZOLE MAGNESIUM
     Indication: GASTROOESOPHAGEAL REFLUX DISEASE
     Dosage: 40.0MG UNKNOWN
     Route: 048
     Dates: start: 200607, end: 201209
  86. NEXIUM [Suspect]
     Active Substance: ESOMEPRAZOLE MAGNESIUM
     Indication: GASTROOESOPHAGEAL REFLUX DISEASE
     Dosage: UNKNOWN
     Route: 048
     Dates: start: 20071123
  87. ALLOPURINOL. [Concomitant]
     Active Substance: ALLOPURINOL
     Dosage: 10.0MG UNKNOWN
     Route: 065
     Dates: start: 20060814
  88. AMITRIPTYLINE [Concomitant]
     Active Substance: AMITRIPTYLINE
     Dosage: 20.0MG UNKNOWN
     Route: 065
     Dates: start: 20121012
  89. ASPIRIN. [Concomitant]
     Active Substance: ASPIRIN
  90. CLOTRIMAZOLE. [Concomitant]
     Active Substance: CLOTRIMAZOLE
  91. ROXICET [Concomitant]
     Active Substance: ACETAMINOPHEN\OXYCODONE HYDROCHLORIDE
  92. VIGAMOX [Concomitant]
     Active Substance: MOXIFLOXACIN HYDROCHLORIDE
  93. METOPROLOL TARTRATE. [Concomitant]
     Active Substance: METOPROLOL TARTRATE
  94. SERTRALINE [Concomitant]
     Active Substance: SERTRALINE HYDROCHLORIDE
  95. TASIGNA [Concomitant]
     Active Substance: NILOTINIB
  96. SKELAXIN [Concomitant]
     Active Substance: METAXALONE
  97. SPIRANOLACTONE [Concomitant]
     Active Substance: SPIRONOLACTONE
  98. FLAGYL [Concomitant]
     Active Substance: METRONIDAZOLE\METRONIDAZOLE HYDROCHLORIDE
  99. BENTYL [Concomitant]
     Active Substance: DICYCLOMINE HYDROCHLORIDE
  100. PROILA [Concomitant]
  101. NEXIUM [Suspect]
     Active Substance: ESOMEPRAZOLE MAGNESIUM
     Indication: GASTROOESOPHAGEAL REFLUX DISEASE
     Dosage: UNKNOWN
     Route: 048
     Dates: start: 20120707
  102. ACTOS [Concomitant]
     Active Substance: PIOGLITAZONE HYDROCHLORIDE
     Dosage: 15.0MG UNKNOWN
     Route: 065
     Dates: start: 20070831
  103. SIMVASTATIN. [Concomitant]
     Active Substance: SIMVASTATIN
     Dosage: 80.0MG UNKNOWN
     Route: 065
     Dates: start: 20110117
  104. HYDROXYZINE [Concomitant]
     Active Substance: HYDROXYZINE HYDROCHLORIDE
  105. CIPROFLOXACIN. [Concomitant]
     Active Substance: CIPROFLOXACIN
  106. VERAMYST [Concomitant]
     Active Substance: FLUTICASONE FUROATE
  107. BACLOFEN. [Concomitant]
     Active Substance: BACLOFEN
  108. MORPHINE [Concomitant]
     Active Substance: MORPHINE
  109. CODEINE PHOSPHATE [Concomitant]
     Active Substance: CODEINE PHOSPHATE
  110. METHADONE [Concomitant]
     Active Substance: METHADONE HYDROCHLORIDE
  111. PROVIGIL [Concomitant]
     Active Substance: MODAFINIL
  112. SEMPREX [Concomitant]
  113. CALCIUM CITRATE [Concomitant]
     Active Substance: CALCIUM CITRATE

REACTIONS (6)
  - Chronic kidney disease-mineral and bone disorder [Unknown]
  - Renal failure [Not Recovered/Not Resolved]
  - Acute kidney injury [Unknown]
  - Tubulointerstitial nephritis [Unknown]
  - Chronic kidney disease [Not Recovered/Not Resolved]
  - End stage renal disease [Unknown]

NARRATIVE: CASE EVENT DATE: 2009
